FAERS Safety Report 7161608-6 (Version None)
Quarter: 2010Q4

REPORT INFORMATION
  Report Type: 
  Country: None (occurrence: None)
  Receive Date: 20101215
  Receipt Date: 20101203
  Transmission Date: 20110411
  Serious: Yes (Hospitalization)
  Sender: FDA-Public Use
  Company Number: JP-AMGEN-JPNCT2010003613

PATIENT

DRUGS (7)
  1. PANITUMUMAB [Suspect]
     Indication: COLORECTAL CANCER METASTATIC
     Dosage: UNK
     Dates: start: 20100820
  2. CORTICOSTEROIDS [Concomitant]
     Indication: PROPHYLAXIS
     Route: 065
  3. DECADRON [Concomitant]
     Route: 042
  4. GASTER [Concomitant]
     Route: 048
  5. LOXONIN [Concomitant]
     Route: 048
  6. OPSO [Concomitant]
     Route: 048
  7. VECTIBIX [Suspect]
     Indication: COLORECTAL CANCER
     Route: 041
     Dates: start: 20100820

REACTIONS (3)
  - BLOOD POTASSIUM INCREASED [None]
  - DRY SKIN [None]
  - PARONYCHIA [None]
